FAERS Safety Report 7511205-5 (Version None)
Quarter: 2011Q2

REPORT INFORMATION
  Report Type: 
  Country: None (occurrence: None)
  Receive Date: 20110531
  Receipt Date: 20110516
  Transmission Date: 20111010
  Serious: Yes (Hospitalization)
  Sender: FDA-Public Use
  Company Number: PHHY2011US34143

PATIENT
  Sex: Female
  Weight: 62.6 kg

DRUGS (8)
  1. CLARITIN [Concomitant]
  2. EXJADE [Suspect]
     Indication: ANAEMIA
     Dosage: 500 MG, QD
     Route: 048
     Dates: start: 20110415
  3. RESTASIS [Concomitant]
     Indication: DRY EYE
  4. ACETAMINOPHEN [Concomitant]
     Indication: SLEEP DISORDER
  5. LEVOTHYROXINE SODIUM [Concomitant]
  6. ASPIRIN [Concomitant]
  7. FOLIC ACID [Concomitant]
  8. LISINOPRIL [Concomitant]

REACTIONS (8)
  - DIVERTICULITIS [None]
  - DIARRHOEA [None]
  - DECREASED APPETITE [None]
  - VOMITING [None]
  - ABDOMINAL DISTENSION [None]
  - NAUSEA [None]
  - ABDOMINAL PAIN UPPER [None]
  - MUSCLE SPASMS [None]
